FAERS Safety Report 4462357-5 (Version None)
Quarter: 2004Q3

REPORT INFORMATION
  Report Type: 
  Country: None (occurrence: None)
  Receive Date: 20040924
  Receipt Date: 20040913
  Transmission Date: 20050211
  Serious: Yes (Other)
  Sender: FDA-Public Use
  Company Number: 200420524BWH

PATIENT
  Age: 59 Year
  Sex: Male
  Weight: 88.4514 kg

DRUGS (4)
  1. LEVITRA [Suspect]
     Indication: ERECTILE DYSFUNCTION
     Dosage: 10 MG, PRN, ORAL
     Route: 048
     Dates: start: 20040601, end: 20040910
  2. XANAX [Concomitant]
  3. PROPACET 100 [Concomitant]
  4. LOTREL [Concomitant]

REACTIONS (3)
  - ABNORMAL SENSATION IN EYE [None]
  - BLOOD PRESSURE DECREASED [None]
  - IRITIS [None]
